FAERS Safety Report 23058379 (Version 1)
Quarter: 2023Q4

REPORT INFORMATION
  Report Type: Spontaneous
  Country: RU (occurrence: RU)
  Receive Date: 20231012
  Receipt Date: 20231012
  Transmission Date: 20240109
  Serious: Yes (Hospitalization, Other)
  Sender: FDA-Public Use
  Company Number: RU-SA-SAC20231010001133

PATIENT
  Age: 10 Year
  Sex: Female

DRUGS (2)
  1. DUPIXENT [Suspect]
     Active Substance: DUPILUMAB
     Indication: Dermatitis atopic
     Dosage: UNK
     Route: 058
     Dates: start: 20220624
  2. SALMECORT [Concomitant]
     Indication: Asthma
     Dosage: 25 + 125 MCG, AT 2 DOSES 2 TIMES THROUGH SPACER

REACTIONS (5)
  - Body temperature increased [Recovered/Resolved]
  - Headache [Recovered/Resolved]
  - Poisoning [Recovered/Resolved]
  - Hospitalisation [Recovered/Resolved]
  - Arthralgia [Recovered/Resolved]

NARRATIVE: CASE EVENT DATE: 20230401
